FAERS Safety Report 5977335-4 (Version None)
Quarter: 2008Q4

REPORT INFORMATION
  Report Type: 
  Country: None (occurrence: None)
  Receive Date: 20081203
  Receipt Date: 20081124
  Transmission Date: 20090506
  Serious: Yes (Other)
  Sender: FDA-Public Use
  Company Number: PHHY2008BR29881

PATIENT
  Sex: Female
  Weight: 63 kg

DRUGS (2)
  1. ZELMAC [Suspect]
     Dosage: 2 TABS/DAY (MORNING AND EVENING) BEFORE MEALS
     Route: 048
     Dates: start: 20081009
  2. ZELMAC [Suspect]
     Dosage: 1 TAB/DAY
     Route: 048

REACTIONS (7)
  - ABDOMINAL DISTENSION [None]
  - ABDOMINAL PAIN UPPER [None]
  - ANOREXIA [None]
  - DYSPEPSIA [None]
  - LIVER DISORDER [None]
  - POISONING [None]
  - RETCHING [None]
